FAERS Safety Report 13698141 (Version 6)
Quarter: 2018Q1

REPORT INFORMATION
  Report Type: Report from Study
  Country: US (occurrence: US)
  Receive Date: 20170628
  Receipt Date: 20180102
  Transmission Date: 20180508
  Serious: Yes (Death, Hospitalization, Other)
  Sender: FDA-Public Use
  Company Number: US-ASTELLAS-2017US024887

PATIENT
  Age: 88 Year
  Sex: Male

DRUGS (2)
  1. ENZALUTAMIDE [Suspect]
     Active Substance: ENZALUTAMIDE
     Indication: HORMONE-REFRACTORY PROSTATE CANCER
     Route: 048
  2. ENZALUTAMIDE [Suspect]
     Active Substance: ENZALUTAMIDE
     Route: 048

REACTIONS (8)
  - Loss of personal independence in daily activities [Unknown]
  - Limb operation [Unknown]
  - Transfusion [Unknown]
  - Limb injury [Recovering/Resolving]
  - Malaise [Unknown]
  - Death [Fatal]
  - Lower limb fracture [Unknown]
  - Movement disorder [Unknown]

NARRATIVE: CASE EVENT DATE: 201704
